FAERS Safety Report 8207005-3 (Version None)
Quarter: 2012Q1

REPORT INFORMATION
  Report Type: 
  Country: None (occurrence: None)
  Receive Date: 20120312
  Receipt Date: 20120302
  Transmission Date: 20120608
  Serious: Yes (Other)
  Sender: FDA-Public Use
  Company Number: 216637

PATIENT
  Age: 74 Year
  Sex: Female

DRUGS (1)
  1. INNOHEP [Suspect]
     Indication: DEEP VEIN THROMBOSIS
     Dosage: 0.7 ML

REACTIONS (2)
  - RENAL FAILURE [None]
  - MUSCLE HAEMORRHAGE [None]
